APPROVED DRUG PRODUCT: LISINOPRIL
Active Ingredient: LISINOPRIL
Strength: 5MG
Dosage Form/Route: TABLET;ORAL
Application: A077321 | Product #002 | TE Code: AB
Applicant: LUPIN LTD
Approved: Sep 9, 2005 | RLD: No | RS: No | Type: RX